FAERS Safety Report 7116966-5 (Version None)
Quarter: 2010Q4

REPORT INFORMATION
  Report Type: 
  Country: None (occurrence: None)
  Receive Date: 20101122
  Receipt Date: 20101108
  Transmission Date: 20110411
  Serious: Yes (Hospitalization)
  Sender: FDA-Public Use
  Company Number: US-BAYER-201013831NA

PATIENT
  Age: 52 Year
  Sex: Female
  Weight: 82 kg

DRUGS (7)
  1. YASMIN [Suspect]
     Indication: ORAL CONTRACEPTION
     Route: 048
     Dates: start: 20060101, end: 20080101
  2. YAZ [Suspect]
     Indication: PRODUCT USED FOR UNKNOWN INDICATION
  3. OCELLA [Suspect]
     Indication: PRODUCT USED FOR UNKNOWN INDICATION
  4. NAPROXEN [Concomitant]
  5. LORATADINE [Concomitant]
  6. GLIPIZIDE [Concomitant]
     Dosage: 2.5MG/500MG
     Route: 048
  7. ATENOLOL [Concomitant]

REACTIONS (4)
  - CHEST PAIN [None]
  - CORONARY ARTERY DISEASE [None]
  - DYSPNOEA [None]
  - MYOCARDIAL INFARCTION [None]
